FAERS Safety Report 5868735-1 (Version None)
Quarter: 2008Q3

REPORT INFORMATION
  Report Type: 
  Country: None (occurrence: None)
  Receive Date: 20080828
  Receipt Date: 20080819
  Transmission Date: 20090109
  Serious: Yes (Other)
  Sender: FDA-Public Use
  Company Number: 2008US002201

PATIENT
  Age: 63 Year
  Sex: Female

DRUGS (7)
  1. ADENOSCAN [Suspect]
     Indication: SCAN MYOCARDIAL PERFUSION
     Dosage: 140 UG/KG
  2. CARDIOLITE [Suspect]
     Indication: SCAN MYOCARDIAL PERFUSION
  3. ASPIRIN (CITRIC ACID) [Concomitant]
  4. METOPROLOL TARTRATE [Concomitant]
  5. ENALAPRIL MALEATE [Concomitant]
  6. GLYBURIDE [Concomitant]
  7. METFORMIN HCL [Concomitant]

REACTIONS (4)
  - ANAPHYLACTIC REACTION [None]
  - ANGIOEDEMA [None]
  - DROOLING [None]
  - SPEECH DISORDER [None]
